FAERS Safety Report 9285687 (Version 1)
Quarter: 2013Q2

REPORT INFORMATION
  Report Type: Spontaneous
  Country: US (occurrence: US)
  Receive Date: 20130513
  Receipt Date: 20130513
  Transmission Date: 20140414
  Serious: Yes (Other)
  Sender: FDA-Public Use
  Company Number: US-PFIZER INC-2013143980

PATIENT
  Sex: Female

DRUGS (5)
  1. AMLODIPINE BESILATE [Suspect]
     Indication: HYPERTENSION
     Dosage: UNK
  2. LEVOTHYROXINE [Interacting]
     Indication: THYROID DISORDER
     Dosage: 50 UG, FIVE DAYS A WEEK
     Dates: start: 2012, end: 20130422
  3. LEVOTHYROXINE [Interacting]
     Dosage: 75 UG, TWO DAYS IN WEEKEND
     Dates: start: 2012, end: 20130422
  4. LEXAPRO [Interacting]
     Indication: DEPRESSION
     Dosage: UNK
  5. SYNTHROID [Interacting]
     Dosage: UNK
     Dates: start: 201304

REACTIONS (5)
  - Urinary tract infection [Unknown]
  - Drug interaction [Unknown]
  - Malaise [Not Recovered/Not Resolved]
  - Breath odour [Unknown]
  - Skin odour abnormal [Unknown]
